FAERS Safety Report 13580432 (Version 1)
Quarter: 2017Q2

REPORT INFORMATION
  Report Type: Report from Study
  Country: ES (occurrence: ES)
  Receive Date: 20170525
  Receipt Date: 20170525
  Transmission Date: 20170830
  Serious: Yes (Other)
  Sender: FDA-Public Use
  Company Number: ES-ROCHE-1938966

PATIENT
  Sex: Female

DRUGS (1)
  1. RITUXIMAB [Suspect]
     Active Substance: RITUXIMAB
     Indication: RHEUMATOID ARTHRITIS
     Dosage: INTRAVENOUS BOLUS
     Route: 042
     Dates: start: 20150508, end: 20160707

REACTIONS (1)
  - Cardiac operation [Recovered/Resolved with Sequelae]

NARRATIVE: CASE EVENT DATE: 20160829
